FAERS Safety Report 4868185-0 (Version None)
Quarter: 2005Q4

REPORT INFORMATION
  Report Type: 
  Country: None (occurrence: None)
  Receive Date: 20051229
  Receipt Date: 20051201
  Transmission Date: 20060501
  Serious: Yes (Other)
  Sender: FDA-Public Use
  Company Number: JP-AVENTIS-200513610JP

PATIENT
  Age: 57 Year
  Sex: Male
  Weight: 81.4 kg

DRUGS (8)
  1. TAXOTERE [Suspect]
     Indication: LUNG NEOPLASM MALIGNANT
     Route: 041
     Dates: start: 20050524, end: 20050524
  2. TAXOTERE [Suspect]
     Route: 041
     Dates: start: 20050616, end: 20050616
  3. TAXOTERE [Suspect]
     Route: 041
     Dates: start: 20050707, end: 20050707
  4. TAXOTERE [Suspect]
     Route: 041
     Dates: start: 20050728, end: 20050728
  5. TAXOTERE [Suspect]
     Route: 041
     Dates: start: 20050823, end: 20050823
  6. TAXOTERE [Suspect]
     Route: 041
     Dates: start: 20050922, end: 20050922
  7. ISOTONIC SODIUM CHLORIDE SOLUTION [Concomitant]
     Route: 042
     Dates: start: 20050524
  8. RESTAMIN [Concomitant]
     Route: 048
     Dates: start: 20050524

REACTIONS (1)
  - INAPPROPRIATE ANTIDIURETIC HORMONE SECRETION [None]
